FAERS Safety Report 13280019 (Version 1)
Quarter: 2017Q1

REPORT INFORMATION
  Report Type: Report from Study
  Country: US (occurrence: US)
  Receive Date: 20170301
  Receipt Date: 20170301
  Transmission Date: 20170428
  Serious: Yes (Hospitalization, Other)
  Sender: FDA-Public Use
  Company Number: US-AMAG PHARMACEUTICALS, INC.-AMAG201601102

PATIENT

DRUGS (2)
  1. MAKENA [Suspect]
     Active Substance: HYDROXYPROGESTERONE CAPROATE
     Indication: PREMATURE RUPTURE OF MEMBRANES
     Dosage: 250 MG, UNK
     Route: 030
     Dates: start: 20160229, end: 20160608
  2. PRENATAL VITAMINS [Concomitant]
     Active Substance: VITAMINS
     Indication: PREGNANCY
     Dosage: UNK
     Route: 065
     Dates: start: 20151020

REACTIONS (1)
  - Premature delivery [Recovered/Resolved with Sequelae]

NARRATIVE: CASE EVENT DATE: 20160613
